FAERS Safety Report 11106068 (Version 1)
Quarter: 2015Q2

REPORT INFORMATION
  Report Type: Spontaneous
  Country: US (occurrence: None)
  Receive Date: 20150508
  Receipt Date: 20150508
  Transmission Date: 20150821
  Serious: Yes (Hospitalization)
  Sender: FDA-Public Use
  Company Number: US-ZYDUS-007890

PATIENT
  Age: 59 Year
  Sex: Female

DRUGS (4)
  1. AMIODARONE (AMIODARONE) [Suspect]
     Active Substance: AMIODARONE
  2. MYCOPHENOLATE MOFETIL. [Concomitant]
     Active Substance: MYCOPHENOLATE MOFETIL
  3. TACROLIMUS. [Concomitant]
     Active Substance: TACROLIMUS
  4. PREDNISONE (PREDNISONE) [Suspect]
     Active Substance: PREDNISONE

REACTIONS (2)
  - Cataract [None]
  - Hypothyroidism [None]
